FAERS Safety Report 11219746 (Version 1)
Quarter: 2015Q2

REPORT INFORMATION
  Report Type: Report from Study
  Country: US (occurrence: US)
  Receive Date: 20150625
  Receipt Date: 20150625
  Transmission Date: 20150821
  Serious: No
  Sender: FDA-Public Use
  Company Number: US-GLAXOSMITHKLINE-US2015GSK089066

PATIENT
  Sex: Female

DRUGS (6)
  1. LAMIVUDINE. [Suspect]
     Active Substance: LAMIVUDINE
     Indication: RETROVIRAL INFECTION
     Route: 048
  2. DELAVIRDINE MESYLATE [Suspect]
     Active Substance: DELAVIRDINE MESYLATE
     Indication: RETROVIRAL INFECTION
  3. ZIDOVUDINE. [Suspect]
     Active Substance: ZIDOVUDINE
     Indication: RETROVIRAL INFECTION
     Route: 048
  4. SAQUINAVIR [Suspect]
     Active Substance: SAQUINAVIR
     Indication: RETROVIRAL INFECTION
     Route: 048
  5. NELFINAVIR [Suspect]
     Active Substance: NELFINAVIR
     Indication: RETROVIRAL INFECTION
     Route: 048
  6. STAVUDINE. [Suspect]
     Active Substance: STAVUDINE
     Indication: RETROVIRAL INFECTION
     Route: 048

REACTIONS (2)
  - Exposure during pregnancy [Unknown]
  - Live birth [Unknown]
